FAERS Safety Report 5309237-0 (Version None)
Quarter: 2007Q2

REPORT INFORMATION
  Report Type: 
  Country: None (occurrence: None)
  Receive Date: 20070426
  Receipt Date: 20070412
  Transmission Date: 20071010
  Serious: Yes (Hospitalization, Disabling, Other)
  Sender: FDA-Public Use
  Company Number: FR-ABBOTT-07P-056-0365814-00

PATIENT
  Sex: Male
  Weight: 82 kg

DRUGS (4)
  1. RITONAVIR SOFT GELATIN CAPSULES [Suspect]
     Indication: HIV INFECTION
     Route: 048
  2. APTIVUS [Suspect]
     Indication: HIV INFECTION
     Route: 048
  3. ENFUVIRTIDE [Suspect]
     Indication: HIV INFECTION
     Route: 058
     Dates: start: 20051128, end: 20061227
  4. EMTRICITABINE/TENOFOVIR DISOPROXIL [Suspect]
     Indication: HIV INFECTION
     Route: 048

REACTIONS (1)
  - LARYNGEAL CANCER [None]
